FAERS Safety Report 8517915-5 (Version None)
Quarter: 2012Q3

REPORT INFORMATION
  Report Type: 
  Country: None (occurrence: None)
  Receive Date: 20120718
  Receipt Date: 20110715
  Transmission Date: 20120928
  Serious: No
  Sender: FDA-Public Use
  Company Number: US-BRISTOL-MYERS SQUIBB COMPANY-15906084

PATIENT
  Age: 80 Year
  Sex: Female

DRUGS (5)
  1. COUMADIN [Suspect]
  2. VESICARE [Concomitant]
  3. ALLOPURINOL [Concomitant]
  4. DIOVAN [Concomitant]
  5. GLIPIZIDE [Concomitant]

REACTIONS (1)
  - INTERNATIONAL NORMALISED RATIO INCREASED [None]
